FAERS Safety Report 10535512 (Version 2)
Quarter: 2014Q4

REPORT INFORMATION
  Report Type: Spontaneous
  Country: US (occurrence: US)
  Receive Date: 20141022
  Receipt Date: 20141022
  Transmission Date: 20150529
  Serious: No
  Sender: FDA-Public Use
  Company Number: US-RECKITT BENCKISER PHARMACEUTICAL, INC-RB-58168-2013

PATIENT

DRUGS (7)
  1. SUBOXONE [Suspect]
     Active Substance: BUPRENORPHINE HYDROCHLORIDE\NALOXONE HYDROCHLORIDE
     Dosage: SUBOXONE FILM; CUTTING THE FILM, USUALLY TAKING 2MG/DAILY
     Route: 060
     Dates: start: 2012
  2. AMPHETAMINE SALT COMPOUND [Concomitant]
     Indication: ATTENTION DEFICIT/HYPERACTIVITY DISORDER
     Dosage: AS NEEDED 2-3 TIMES/DAILY
     Route: 048
  3. NORVIR [Concomitant]
     Active Substance: RITONAVIR
     Indication: HIV INFECTION
     Dosage: FREQUENCY: DAILY
     Route: 048
  4. PROVISTA [Concomitant]
     Indication: HIV INFECTION
     Dosage: FREQUENCY: DAILY
     Route: 048
  5. SUBOXONE [Suspect]
     Active Substance: BUPRENORPHINE HYDROCHLORIDE\NALOXONE HYDROCHLORIDE
     Dosage: SUBOXONE FILM
     Route: 060
     Dates: start: 2012, end: 2012
  6. TRUVADA [Concomitant]
     Active Substance: EMTRICITABINE\TENOFOVIR DISOPROXIL FUMARATE
     Indication: HIV INFECTION
     Dosage: DOSE UNITS: 2-300MG; FREQUENCY: DAILY
     Route: 048
  7. SUBOXONE [Suspect]
     Active Substance: BUPRENORPHINE HYDROCHLORIDE\NALOXONE HYDROCHLORIDE
     Indication: DRUG DEPENDENCE
     Dosage: SUBOXONE FILM; PRESCRIBED 8MG/DAILY, BUT WAS CUTTING THE FILM TO ACHIEVE VARIOUS DOSES, MOSTLY 2MG
     Route: 060
     Dates: start: 2011, end: 2012

REACTIONS (11)
  - Therapeutic response unexpected [Recovered/Resolved]
  - Euphoric mood [Recovered/Resolved]
  - Sleep disorder [Not Recovered/Not Resolved]
  - Nausea [Not Recovered/Not Resolved]
  - Drug ineffective [Recovered/Resolved]
  - Wrong technique in drug usage process [Not Recovered/Not Resolved]
  - Extra dose administered [Recovered/Resolved]
  - Decreased appetite [Recovered/Resolved]
  - Underdose [Not Recovered/Not Resolved]
  - Feeling abnormal [Recovered/Resolved]
  - Vomiting [Not Recovered/Not Resolved]

NARRATIVE: CASE EVENT DATE: 2011
